FAERS Safety Report 13963051 (Version 1)
Quarter: 2017Q3

REPORT INFORMATION
  Report Type: Spontaneous
  Country: US (occurrence: None)
  Receive Date: 20170912
  Receipt Date: 20170912
  Transmission Date: 20171128
  Serious: No
  Sender: FDA-Public Use
  Company Number: None

PATIENT
  Age: 51 Year
  Sex: Male
  Weight: 99.79 kg

DRUGS (5)
  1. LEVTHYROXINE [Concomitant]
     Active Substance: LEVOTHYROXINE
  2. LINSIPROL [Concomitant]
  3. SUMATRIPTAN. [Concomitant]
     Active Substance: SUMATRIPTAN
  4. ATORVASTATIN [Concomitant]
     Active Substance: ATORVASTATIN
  5. BOTOX [Suspect]
     Active Substance: ONABOTULINUMTOXINA
     Indication: MIGRAINE
     Dates: start: 20170802

REACTIONS (5)
  - Diplopia [None]
  - Vision blurred [None]
  - Eye swelling [None]
  - Altered visual depth perception [None]
  - Impaired driving ability [None]

NARRATIVE: CASE EVENT DATE: 20170802
